FAERS Safety Report 13151706 (Version 1)
Quarter: 2017Q1

REPORT INFORMATION
  Report Type: Spontaneous
  Country: GB (occurrence: GB)
  Receive Date: 20170125
  Receipt Date: 20170125
  Transmission Date: 20170428
  Serious: Yes (Other)
  Sender: FDA-Public Use
  Company Number: GB-DRREDDYS-GER/UKI/17/0086477

PATIENT
  Age: 55 Year
  Sex: Female
  Weight: 44.45 kg

DRUGS (1)
  1. TERBINAFINE. [Suspect]
     Active Substance: TERBINAFINE
     Indication: NAIL INFECTION
     Route: 048
     Dates: start: 20161111, end: 20161229

REACTIONS (5)
  - Myalgia [Not Recovered/Not Resolved]
  - Hepatitis [Unknown]
  - Dysgeusia [Not Recovered/Not Resolved]
  - Arthralgia [Not Recovered/Not Resolved]
  - White blood cell count decreased [Unknown]

NARRATIVE: CASE EVENT DATE: 20161221
